FAERS Safety Report 5600368-4 (Version None)
Quarter: 2008Q1

REPORT INFORMATION
  Report Type: 
  Country: None (occurrence: None)
  Receive Date: 20080123
  Receipt Date: 20080116
  Transmission Date: 20080703
  Serious: Yes (Hospitalization)
  Sender: FDA-Public Use
  Company Number: FR-ASTRAZENECA-2008CG00108

PATIENT
  Age: 20351 Day
  Sex: Male

DRUGS (12)
  1. INEXIUM [Suspect]
     Route: 048
  2. TRIATEC [Suspect]
     Route: 048
  3. INACTIVATED PURIFIED FLU VACCINE [Suspect]
     Indication: INFLUENZA IMMUNISATION
     Route: 058
     Dates: start: 20071021, end: 20071021
  4. TAHOR [Suspect]
     Indication: INFARCTION
     Route: 048
  5. FUCIDINE CAP [Suspect]
     Indication: INFECTION
     Route: 048
  6. BACTRIM [Suspect]
     Indication: INFECTION
     Route: 048
  7. LANTUS [Suspect]
     Indication: DIABETES MELLITUS
     Route: 058
  8. ACTISKENAN [Suspect]
     Route: 048
  9. LASIX [Suspect]
     Dosage: 40 MG IN THE MORNING, 20 MG AT NOON, 20 MG IN THE EVENING
     Route: 048
  10. STILNOX [Suspect]
     Route: 048
  11. PREVISCAN [Suspect]
     Route: 048
  12. SERESTA [Suspect]
     Route: 048

REACTIONS (1)
  - RHABDOMYOLYSIS [None]
